FAERS Safety Report 7325753-4 (Version None)
Quarter: 2011Q1

REPORT INFORMATION
  Report Type: 
  Country: None (occurrence: None)
  Receive Date: 20110302
  Receipt Date: 20110225
  Transmission Date: 20110831
  Serious: Yes (Hospitalization)
  Sender: FDA-Public Use
  Company Number: IT-PFIZER INC-2011033344

PATIENT
  Age: 60 Year
  Sex: Female

DRUGS (6)
  1. ENAPREN [Concomitant]
     Indication: HYPERTENSION
     Dosage: 20 MG, UNK
     Route: 048
  2. PRULIFLOXACIN [Concomitant]
     Dosage: 600 MG, UNK
     Route: 048
  3. MODURETIC 5-50 [Concomitant]
     Dosage: 25 MG/2.5 MG, UNK
     Route: 048
  4. CARDURA [Suspect]
     Indication: HYPERTENSION
     Dosage: 2 MG, 1X/DAY
     Route: 048
     Dates: start: 20110212, end: 20110213
  5. CLEXANE [Concomitant]
     Indication: THROMBOSIS PROPHYLAXIS
     Dosage: 4000 IU, UNK
     Route: 058
  6. ASPIRIN [Concomitant]
     Dosage: 100 MG, UNK
     Route: 048

REACTIONS (6)
  - HYPOTENSION [None]
  - PARAESTHESIA [None]
  - PALPITATIONS [None]
  - CHEST PAIN [None]
  - FEELING HOT [None]
  - DRY MOUTH [None]
